FAERS Safety Report 16771041 (Version 1)
Quarter: 2019Q3

REPORT INFORMATION
  Report Type: Spontaneous
  Country: US (occurrence: US)
  Receive Date: 20190904
  Receipt Date: 20190904
  Transmission Date: 20191005
  Serious: Yes (Hospitalization, Other)
  Sender: FDA-Public Use
  Company Number: US-TAKEDA-2019TUS050734

PATIENT
  Age: 75 Year
  Sex: Female

DRUGS (3)
  1. VELCADE [Suspect]
     Active Substance: BORTEZOMIB
     Indication: PRODUCT USED FOR UNKNOWN INDICATION
     Dosage: UNK
     Route: 065
  2. REVLIMID [Suspect]
     Active Substance: LENALIDOMIDE
     Indication: PLASMA CELL MYELOMA
     Dosage: 25 MILLIGRAM
     Route: 048
     Dates: start: 20190418, end: 20190617
  3. REVLIMID [Suspect]
     Active Substance: LENALIDOMIDE
     Indication: MYELOID LEUKAEMIA
     Dosage: 25 MILLIGRAM, UNK
     Route: 048
     Dates: start: 20190612

REACTIONS (3)
  - Atrial fibrillation [Recovering/Resolving]
  - Pulmonary oedema [Recovering/Resolving]
  - Cardiac failure congestive [Unknown]

NARRATIVE: CASE EVENT DATE: 201904
